FAERS Safety Report 24023331 (Version 1)
Quarter: 2024Q2

REPORT INFORMATION
  Report Type: Report from Study
  Country: US (occurrence: US)
  Receive Date: 20240627
  Receipt Date: 20240627
  Transmission Date: 20240716
  Serious: No
  Sender: FDA-Public Use
  Company Number: US-ROCHE-3568587

PATIENT
  Age: 89 Year
  Sex: Female

DRUGS (9)
  1. VABYSMO [Suspect]
     Active Substance: FARICIMAB\FARICIMAB-SVOA
     Indication: Neovascular age-related macular degeneration
     Route: 031
  2. VABYSMO [Suspect]
     Active Substance: FARICIMAB\FARICIMAB-SVOA
     Indication: Choroidal neovascularisation
  3. TUMS [Concomitant]
     Active Substance: CALCIUM CARBONATE
  4. DILTIAZEM [Concomitant]
     Active Substance: DILTIAZEM
  5. MELATONIN [Concomitant]
     Active Substance: MELATONIN
  6. METOPROLOL [Concomitant]
     Active Substance: METOPROLOL
  7. SPIRONOLACTONE [Concomitant]
     Active Substance: SPIRONOLACTONE
  8. WARFARIN [Concomitant]
     Active Substance: WARFARIN
  9. RECLAST [Concomitant]
     Active Substance: ZOLEDRONIC ACID

REACTIONS (2)
  - Off label use [Unknown]
  - No adverse event [Unknown]
